FAERS Safety Report 10333681 (Version 1)
Quarter: 2014Q3

REPORT INFORMATION
  Report Type: Spontaneous
  Country: US (occurrence: US)
  Receive Date: 20140723
  Receipt Date: 20140723
  Transmission Date: 20150326
  Serious: No
  Sender: FDA-Public Use
  Company Number: US-UNITED THERAPEUTICS-UTC-047965

PATIENT
  Sex: Female
  Weight: 86.63 kg

DRUGS (3)
  1. COUMADIN [Concomitant]
     Active Substance: WARFARIN SODIUM
  2. LETAIRIS [Concomitant]
     Active Substance: AMBRISENTAN
  3. REMODULIN [Suspect]
     Active Substance: TREPROSTINIL
     Dosage: .107 UG/KG/MIN
     Route: 041
     Dates: start: 20071008

REACTIONS (2)
  - Oedema [Not Recovered/Not Resolved]
  - Irritability [Not Recovered/Not Resolved]
